FAERS Safety Report 5568354-0 (Version None)
Quarter: 2007Q4

REPORT INFORMATION
  Report Type: 
  Country: None (occurrence: None)
  Receive Date: 20071220
  Receipt Date: 20071211
  Transmission Date: 20080405
  Serious: Yes (Other)
  Sender: FDA-Public Use
  Company Number: US-KINGPHARMUSA00001-K200701608

PATIENT

DRUGS (4)
  1. BICILLIN L-A [Suspect]
     Indication: ERYSIPELAS
     Dosage: 2.4 MIU, QMON
     Route: 030
     Dates: start: 20040101, end: 20071201
  2. HESPERIDIN [Concomitant]
     Dosage: 6 MG, UNK
  3. IBUPROFEN [Concomitant]
     Dosage: 400 MG, BID
  4. ESCINA [Concomitant]

REACTIONS (8)
  - CHILLS [None]
  - DIZZINESS [None]
  - DYSPHAGIA [None]
  - DYSPNOEA [None]
  - FEELING ABNORMAL [None]
  - SYNCOPE [None]
  - THROAT TIGHTNESS [None]
  - TREMOR [None]
